FAERS Safety Report 10385485 (Version 1)
Quarter: 2014Q3

REPORT INFORMATION
  Report Type: Spontaneous
  Country: ES (occurrence: ES)
  Receive Date: 20140814
  Receipt Date: 20140814
  Transmission Date: 20150326
  Serious: Yes (Hospitalization)
  Sender: FDA-Public Use
  Company Number: ES-GLAXOSMITHKLINE-B0979880A

PATIENT
  Age: 69 Year
  Sex: Female

DRUGS (3)
  1. ZAMENE [Concomitant]
     Active Substance: DEFLAZACORT
  2. XELODA [Concomitant]
     Active Substance: CAPECITABINE
     Indication: COLON NEOPLASM
     Route: 048
  3. REVOLADE [Suspect]
     Active Substance: ELTROMBOPAG
     Indication: IMMUNE THROMBOCYTOPENIC PURPURA
     Dosage: 50MG PER DAY
     Route: 048
     Dates: start: 20131127, end: 20140317

REACTIONS (1)
  - Deep vein thrombosis [Unknown]

NARRATIVE: CASE EVENT DATE: 20140315
